FAERS Safety Report 6201320-0 (Version None)
Quarter: 2009Q2

REPORT INFORMATION
  Report Type: 
  Country: None (occurrence: None)
  Receive Date: 20090526
  Receipt Date: 20090515
  Transmission Date: 20091009
  Serious: Yes (Other)
  Sender: FDA-Public Use
  Company Number: PHEH2009US04927

PATIENT
  Sex: Female

DRUGS (2)
  1. ZOMETA [Suspect]
     Indication: METASTASES TO BONE
     Dosage: 4 MG, ONCE/SINGLE
     Route: 042
     Dates: start: 20090506
  2. ZOMETA [Suspect]
     Indication: BLOOD CALCIUM INCREASED

REACTIONS (4)
  - GAIT DISTURBANCE [None]
  - MIGRAINE [None]
  - MUSCULAR WEAKNESS [None]
  - VOMITING [None]
